FAERS Safety Report 14416202 (Version 1)
Quarter: 2018Q1

REPORT INFORMATION
  Report Type: Spontaneous
  Country: US (occurrence: US)
  Receive Date: 20180122
  Receipt Date: 20180122
  Transmission Date: 20180509
  Serious: Yes (Life-Threatening, Hospitalization, Other)
  Sender: FDA-Public Use
  Company Number: US-AUROBINDO-AUR-APL-2018-002444

PATIENT
  Age: 79 Year
  Sex: Female

DRUGS (2)
  1. ROPIVACAINE HYDROCHLORIDE. [Suspect]
     Active Substance: ROPIVACAINE HYDROCHLORIDE
     Dosage: 0.2% AT A BASAL RATE OF 4 CC/HOUR, BOLUS 3CC,
  2. ROPIVACAINE HYDROCHLORIDE. [Suspect]
     Active Substance: ROPIVACAINE HYDROCHLORIDE
     Indication: ANAESTHESIA
     Dosage: BOLUS OF 0.5% ROPIVACAINE10CC
     Route: 040

REACTIONS (4)
  - Respiratory failure [Recovered/Resolved]
  - Stridor [Recovered/Resolved]
  - Aphonia [Recovered/Resolved]
  - Respiratory distress [Recovered/Resolved]
